FAERS Safety Report 8154889-3 (Version None)
Quarter: 2012Q1

REPORT INFORMATION
  Report Type: 
  Country: None (occurrence: None)
  Receive Date: 20120221
  Receipt Date: 20120215
  Transmission Date: 20120608
  Serious: Yes (Hospitalization, Other)
  Sender: FDA-Public Use
  Company Number: PHHY2011CA52162

PATIENT
  Sex: Male

DRUGS (3)
  1. AFINITOR [Suspect]
     Indication: NEUROENDOCRINE TUMOUR
     Dosage: 10 MG EVERY DAY
     Route: 048
     Dates: start: 20110514, end: 20110901
  2. AFINITOR [Suspect]
     Dosage: 10 MG, QD
     Route: 048
     Dates: start: 20120114
  3. SANDOSTATIN LAR [Suspect]
     Indication: NEUROENDOCRINE TUMOUR
     Dosage: 40 MG, QMO
     Route: 030
     Dates: start: 20080808

REACTIONS (10)
  - GASTRIC HAEMORRHAGE [None]
  - BACTERIAL INFECTION [None]
  - PRURITUS [None]
  - BLOOD PRESSURE DECREASED [None]
  - CONTUSION [None]
  - BLOOD TEST ABNORMAL [None]
  - RASH [None]
  - ASTHENIA [None]
  - ECCHYMOSIS [None]
  - OEDEMA PERIPHERAL [None]
